FAERS Safety Report 7716136-3 (Version None)
Quarter: 2011Q3

REPORT INFORMATION
  Report Type: 
  Country: None (occurrence: None)
  Receive Date: 20110829
  Receipt Date: 20110804
  Transmission Date: 20111222
  Serious: No
  Sender: FDA-Public Use
  Company Number: US-ROXANE LABORATORIES, INC.-2011-RO-01110RO

PATIENT
  Sex: Female

DRUGS (5)
  1. CALCIUM CARBONATE [Concomitant]
  2. FISH OIL [Concomitant]
  3. AMLODIPINE [Concomitant]
  4. ANASTROZOLE [Suspect]
     Indication: BREAST CANCER
     Dosage: 1 MG
     Route: 048
  5. VITAMIN D [Concomitant]

REACTIONS (6)
  - OROPHARYNGEAL PAIN [None]
  - COUGH [None]
  - BLOOD GLUCOSE INCREASED [None]
  - DRY SKIN [None]
  - PALPITATIONS [None]
  - BLOOD PRESSURE INCREASED [None]
